FAERS Safety Report 4999630-8 (Version None)
Quarter: 2006Q2

REPORT INFORMATION
  Report Type: 
  Country: None (occurrence: None)
  Receive Date: 20060511
  Receipt Date: 20060117
  Transmission Date: 20061013
  Serious: Yes (Hospitalization, Disabling)
  Sender: FDA-Public Use
  Company Number: US-MERCK-0601USA02181

PATIENT
  Age: 44 Year
  Sex: Female
  Weight: 124 kg

DRUGS (12)
  1. VIOXX [Suspect]
     Indication: RHEUMATOID ARTHRITIS
     Route: 048
     Dates: start: 20010301, end: 20040101
  2. VIOXX [Suspect]
     Indication: PAIN
     Route: 048
     Dates: start: 20010301, end: 20040101
  3. NORVASC [Concomitant]
     Indication: HYPERTENSION
     Route: 065
     Dates: start: 20020101
  4. ALLEGRA [Concomitant]
     Indication: HYPERSENSITIVITY
     Route: 065
  5. [THERAPY UNSPECIFIED] [Concomitant]
     Route: 065
  6. HYZAAR [Concomitant]
     Indication: HYPERTENSION
     Route: 065
     Dates: start: 19971101
  7. K-DUR 10 [Concomitant]
     Route: 065
  8. MIDRIN [Concomitant]
     Route: 065
  9. LASIX [Concomitant]
     Indication: HYPERTENSION
     Route: 065
     Dates: start: 19960701
  10. LASIX [Concomitant]
     Indication: OEDEMA
     Route: 065
     Dates: start: 19960701
  11. CATAPRES [Concomitant]
     Indication: HYPERTENSION
     Route: 065
     Dates: start: 20010701
  12. EFFEXOR [Concomitant]
     Route: 065
     Dates: start: 20011101

REACTIONS (12)
  - ACUTE MYOCARDIAL INFARCTION [None]
  - ASTHMA [None]
  - BLOOD TRIGLYCERIDES INCREASED [None]
  - CARDIAC FAILURE CONGESTIVE [None]
  - CHEST PAIN [None]
  - CHRONIC FATIGUE SYNDROME [None]
  - CORONARY ARTERY DISEASE [None]
  - DIABETES MELLITUS NON-INSULIN-DEPENDENT [None]
  - MUSCULOSKELETAL CHEST PAIN [None]
  - NARCOLEPSY [None]
  - OBESITY [None]
  - OEDEMA PERIPHERAL [None]
